FAERS Safety Report 4408804-6 (Version None)
Quarter: 2004Q3

REPORT INFORMATION
  Report Type: 
  Country: None (occurrence: None)
  Receive Date: 20040727
  Receipt Date: 20040525
  Transmission Date: 20050211
  Serious: Yes (Death, Life-Threatening, Disabling)
  Sender: FDA-Public Use
  Company Number: BE-MERCK-0405BEL00037

PATIENT
  Age: 61 Year
  Sex: Male
  Weight: 51 kg

DRUGS (8)
  1. AMIKACIN [Concomitant]
     Indication: ENDOCARDITIS
     Route: 042
     Dates: start: 20040401, end: 20040404
  2. CANCIDAS [Suspect]
     Indication: ASPERGILLOSIS
     Route: 042
     Dates: start: 20040319, end: 20040405
  3. FLUCONAZOLE [Concomitant]
     Indication: ANTIFUNGAL PROPHYLAXIS
     Route: 048
     Dates: start: 20040302, end: 20040322
  4. CYMEVENE IV [Concomitant]
     Indication: ANTIVIRAL PROPHYLAXIS
     Route: 042
     Dates: start: 20040312, end: 20040401
  5. MERONEM [Concomitant]
     Indication: ENDOCARDITIS
     Route: 042
     Dates: start: 20040330, end: 20040404
  6. BACTRIM [Concomitant]
     Indication: ENDOCARDITIS
     Route: 042
     Dates: start: 20040330, end: 20040404
  7. VANCOMYCIN [Concomitant]
     Indication: ENDOCARDITIS
     Route: 042
     Dates: start: 20040330, end: 20040405
  8. VORICONAZOLE [Concomitant]
     Indication: ASPERGILLOSIS
     Route: 042
     Dates: start: 20040401, end: 20040405

REACTIONS (2)
  - CEREBROVASCULAR ACCIDENT [None]
  - HAEMORRHAGE [None]
